FAERS Safety Report 6018610-7 (Version None)
Quarter: 2008Q4

REPORT INFORMATION
  Report Type: 
  Country: None (occurrence: None)
  Receive Date: 20081223
  Receipt Date: 20081216
  Transmission Date: 20090506
  Serious: Yes (Other)
  Sender: FDA-Public Use
  Company Number: FR-AMGEN-US324681

PATIENT
  Sex: Male
  Weight: 76 kg

DRUGS (3)
  1. ENBREL [Suspect]
     Indication: ANKYLOSING SPONDYLITIS
     Route: 058
     Dates: start: 20041101
  2. VOLTAREN-XR [Concomitant]
     Route: 048
  3. CORTICOSTEROIDS [Concomitant]

REACTIONS (2)
  - ANGINA PECTORIS [None]
  - DRUG EFFECT DECREASED [None]
